FAERS Safety Report 9407407 (Version 3)
Quarter: 2013Q3

REPORT INFORMATION
  Report Type: Spontaneous
  Country: ES (occurrence: ES)
  Receive Date: 20130718
  Receipt Date: 20130813
  Transmission Date: 20140515
  Serious: Yes (Hospitalization)
  Sender: FDA-Public Use
  Company Number: ES-009507513-1307ESP004180

PATIENT
  Age: 47 Year
  Sex: Male
  Weight: 76 kg

DRUGS (2)
  1. VICTRELIS [Suspect]
     Indication: HEPATITIS C
     Dosage: 4 TABLETS EVERY 8 HOURS
     Route: 048
     Dates: start: 201301, end: 20130705
  2. VICTRELIS [Suspect]
     Dosage: 4 TABLETS EVERY 8 HOURS
     Route: 048
     Dates: start: 20130713

REACTIONS (2)
  - Cellulitis [Recovered/Resolved]
  - Eye swelling [Recovered/Resolved]
